FAERS Safety Report 26046216 (Version 1)
Quarter: 2025Q4

REPORT INFORMATION
  Report Type: Spontaneous
  Country: RU (occurrence: RU)
  Receive Date: 20251114
  Receipt Date: 20251114
  Transmission Date: 20260118
  Serious: Yes (Other)
  Sender: ABBVIE
  Company Number: RU-ABBVIE-6545721

PATIENT
  Age: 13 Year
  Sex: Male
  Weight: 45 kg

DRUGS (1)
  1. HUMIRA [Suspect]
     Active Substance: ADALIMUMAB
     Indication: Juvenile idiopathic arthritis
     Dosage: TIME INTERVAL: TOTAL: FREQUENCY TEXT: AT ONCE
     Route: 058
     Dates: start: 20251008, end: 20251008

REACTIONS (3)
  - Cough [Recovered/Resolved with Sequelae]
  - Chest pain [Recovered/Resolved]
  - Dyspnoea [Recovered/Resolved]

NARRATIVE: CASE EVENT DATE: 20251008
